FAERS Safety Report 7957821-8 (Version None)
Quarter: 2011Q4

REPORT INFORMATION
  Report Type: 
  Country: None (occurrence: None)
  Receive Date: 20111205
  Receipt Date: 20111121
  Transmission Date: 20120403
  Serious: Yes (Other)
  Sender: FDA-Public Use
  Company Number: US-ENDO PHARMACEUTICALS INC.-PROP20110191

PATIENT
  Sex: Male

DRUGS (2)
  1. PROPOXYPHENE NAPSYLATE W/ ACETAMINOPHEN [Suspect]
     Route: 048
     Dates: start: 19700101, end: 20090101
  2. PROPOXYPHENE NAPSYLATE W/ ACETAMINOPHEN [Suspect]
     Indication: PAIN
     Route: 048
     Dates: start: 19600101, end: 19690101

REACTIONS (2)
  - MYOCARDIAL INFARCTION [None]
  - CARDIAC PACEMAKER INSERTION [None]
